FAERS Safety Report 9134465 (Version 1)
Quarter: 2013Q1

REPORT INFORMATION
  Report Type: Spontaneous
  Country: US (occurrence: US)
  Receive Date: 20130304
  Receipt Date: 20130304
  Transmission Date: 20140127
  Serious: No
  Sender: FDA-Public Use
  Company Number: US-ENDO PHARMACEUTICALS INC.-VALS20100105

PATIENT
  Age: 68 Year
  Sex: Female

DRUGS (1)
  1. VALSTAR [Suspect]
     Indication: CARCINOMA IN SITU
     Dosage: 800 MG
     Route: 043
     Dates: start: 20101007

REACTIONS (4)
  - Defaecation urgency [Recovered/Resolved]
  - Urinary incontinence [Recovered/Resolved]
  - Bladder spasm [Recovered/Resolved]
  - Burning sensation [Unknown]
